FAERS Safety Report 7013439-5 (Version None)
Quarter: 2010Q3

REPORT INFORMATION
  Report Type: 
  Country: None (occurrence: None)
  Receive Date: 20100924
  Receipt Date: 20100910
  Transmission Date: 20110219
  Serious: No
  Sender: FDA-Public Use
  Company Number: US-PFIZER INC-2010103234

PATIENT
  Sex: Female
  Weight: 68 kg

DRUGS (3)
  1. XANAX [Suspect]
     Indication: SLEEP DISORDER
     Dosage: 2 MG, 1X/DAY
     Route: 048
     Dates: start: 20080101
  2. LANTUS [Suspect]
     Indication: TYPE 2 DIABETES MELLITUS
     Dosage: UNK
     Route: 058
     Dates: start: 20080601
  3. GLYBURIDE [Concomitant]
     Indication: DIABETES MELLITUS
     Dosage: UNK

REACTIONS (4)
  - DYSGEUSIA [None]
  - RASH [None]
  - TINNITUS [None]
  - URTICARIA [None]
